FAERS Safety Report 21179894 (Version 1)
Quarter: 2022Q3

REPORT INFORMATION
  Report Type: Spontaneous
  Country: FR (occurrence: FR)
  Receive Date: 20220805
  Receipt Date: 20220805
  Transmission Date: 20221027
  Serious: Yes (Death, Other)
  Sender: FDA-Public Use
  Company Number: None

PATIENT

DRUGS (1)
  1. ZEPZELCA [Suspect]
     Active Substance: LURBINECTEDIN
     Indication: Small cell lung cancer
     Dosage: 3.2 MILLIGRAM/SQ. METER
     Route: 042
     Dates: start: 20220520, end: 20220630

REACTIONS (3)
  - Acute kidney injury [Fatal]
  - Pancytopenia [Fatal]
  - Diarrhoea [Fatal]

NARRATIVE: CASE EVENT DATE: 20220501
